FAERS Safety Report 19489424 (Version 1)
Quarter: 2021Q3

REPORT INFORMATION
  Report Type: Spontaneous
  Country: DE (occurrence: DE)
  Receive Date: 20210703
  Receipt Date: 20210703
  Transmission Date: 20211014
  Serious: Yes (Hospitalization)
  Sender: FDA-Public Use
  Company Number: DE-TEVA-2021-DE-1928394

PATIENT
  Age: 49 Year
  Sex: Male
  Weight: 83 kg

DRUGS (2)
  1. ATORVASTATIN [Suspect]
     Active Substance: ATORVASTATIN
     Dosage: 20 MILLIGRAM DAILY; 1?0?0?0
     Route: 048
  2. HYDROCHLOROTHIAZID/RAMIPRIL [Suspect]
     Active Substance: HYDROCHLOROTHIAZIDE\RAMIPRIL
     Dosage: 1 DOSAGE FORMS DAILY; 12.5 | 5 MG, 1?0?0?0
     Route: 048

REACTIONS (5)
  - Fatigue [Unknown]
  - Disturbance in attention [Unknown]
  - Visual impairment [Unknown]
  - Hyperglycaemia [Unknown]
  - Thirst [Unknown]
